FAERS Safety Report 8299818-7 (Version None)
Quarter: 2012Q2

REPORT INFORMATION
  Report Type: 
  Country: None (occurrence: None)
  Receive Date: 20120419
  Receipt Date: 20120419
  Transmission Date: 20120825
  Serious: No
  Sender: FDA-Public Use
  Company Number: None

PATIENT
  Age: 66 Year
  Sex: Female
  Weight: 108.86 kg

DRUGS (4)
  1. GABAPENTIN [Concomitant]
     Indication: PAIN
     Dosage: 4 CAPSULES
     Route: 048
     Dates: start: 20120115, end: 20120420
  2. GABAPENTIN [Concomitant]
     Indication: FIBROMYALGIA
     Dosage: 4 CAPSULES
     Route: 048
     Dates: start: 20120115, end: 20120420
  3. CYMBALTA [Suspect]
     Indication: PAIN
     Route: 048
     Dates: start: 20111015, end: 20120420
  4. CYMBALTA [Suspect]
     Indication: FIBROMYALGIA
     Route: 048
     Dates: start: 20111015, end: 20120420

REACTIONS (6)
  - WEIGHT INCREASED [None]
  - NEUROPATHY PERIPHERAL [None]
  - ERYTHEMA [None]
  - SKIN DISCOLOURATION [None]
  - POOR PERIPHERAL CIRCULATION [None]
  - PERIPHERAL COLDNESS [None]
